FAERS Safety Report 18945022 (Version 1)
Quarter: 2021Q1

REPORT INFORMATION
  Report Type: Spontaneous
  Country: US (occurrence: US)
  Receive Date: 20210226
  Receipt Date: 20210226
  Transmission Date: 20210420
  Serious: Yes (Hospitalization)
  Sender: FDA-Public Use
  Company Number: None

PATIENT
  Age: 20 Year
  Sex: Male
  Weight: 86.4 kg

DRUGS (3)
  1. MERCAPTOPURINE. [Concomitant]
     Active Substance: MERCAPTOPURINE
     Dates: start: 20210208
  2. METHOTREXATE. [Suspect]
     Active Substance: METHOTREXATE
     Indication: ACUTE LYMPHOCYTIC LEUKAEMIA (IN REMISSION)
     Dosage: ?          OTHER FREQUENCY:X1;?
     Route: 037
     Dates: start: 20210208, end: 20210208
  3. LEUCOVORIN. [Concomitant]
     Active Substance: LEUCOVORIN
     Dates: start: 20210208, end: 20210209

REACTIONS (10)
  - Seizure like phenomena [None]
  - Facial paresis [None]
  - Neurotoxicity [None]
  - Toxicity to various agents [None]
  - Anxiety [None]
  - Hemiparesis [None]
  - Muscle rigidity [None]
  - Posturing [None]
  - Headache [None]
  - Dysarthria [None]

NARRATIVE: CASE EVENT DATE: 20210218
